FAERS Safety Report 8797508 (Version 2)
Quarter: 2012Q4

REPORT INFORMATION
  Report Type: 
  Country: DE (occurrence: DE)
  Receive Date: 20120920
  Receipt Date: 20121112
  Transmission Date: 20130627
  Serious: Yes (Other)
  Sender: FDA-Public Use
  Company Number: PHHY2012DE080653

PATIENT
  Sex: Male

DRUGS (1)
  1. VOLTAREN [Suspect]
     Dosage: 2 DF, QD
     Route: 048
     Dates: start: 20120903

REACTIONS (2)
  - Gastrointestinal infection [Unknown]
  - Haematochezia [Unknown]
